FAERS Safety Report 7490250-2 (Version None)
Quarter: 2011Q2

REPORT INFORMATION
  Report Type: 
  Country: None (occurrence: None)
  Receive Date: 20110519
  Receipt Date: 20110506
  Transmission Date: 20111010
  Serious: Yes (Other)
  Sender: FDA-Public Use
  Company Number: BR-JNJFOC-20110506237

PATIENT
  Age: 53 Year
  Sex: Female
  Weight: 70 kg

DRUGS (3)
  1. ARA [Concomitant]
     Indication: HYPERTENSION
  2. ACETAMINOPHEN AND CODEINE PHOSPHATE [Suspect]
     Indication: ANALGESIC THERAPY
     Route: 048
     Dates: start: 20110504
  3. OSCAL NOS [Concomitant]
     Indication: OSTEOPENIA

REACTIONS (6)
  - CHILLS [None]
  - VOMITING [None]
  - DIZZINESS [None]
  - HYPOTENSION [None]
  - DRUG INEFFECTIVE [None]
  - NAUSEA [None]
